FAERS Safety Report 8854022 (Version 1)
Quarter: 2012Q4

REPORT INFORMATION
  Report Type: 
  Country: US (occurrence: US)
  Receive Date: 20121022
  Receipt Date: 20121022
  Transmission Date: 20130627
  Serious: Yes (Hospitalization)
  Sender: FDA-Public Use
  Company Number: PHEH2012US020483

PATIENT
  Sex: Male

DRUGS (1)
  1. SANDIMMUN [Suspect]
     Indication: HEART TRANSPLANT
     Dosage: 125 mg, BID
     Route: 048
     Dates: start: 20120611

REACTIONS (3)
  - Deep vein thrombosis [Unknown]
  - Fall [Unknown]
  - Pneumonia [Unknown]
